FAERS Safety Report 4469991-7 (Version None)
Quarter: 2004Q3

REPORT INFORMATION
  Report Type: 
  Country: None (occurrence: None)
  Receive Date: 20040917
  Receipt Date: 20040701
  Transmission Date: 20050211
  Serious: Yes (Other)
  Sender: FDA-Public Use
  Company Number: 2004045677

PATIENT

DRUGS (3)
  1. VFEND [Suspect]
     Indication: ILL-DEFINED DISORDER
  2. KALETRA [Suspect]
     Indication: ILL-DEFINED DISORDER
  3. NEVIRAPINE (NEVIRAPINE) [Concomitant]

REACTIONS (2)
  - DRUG INTERACTION [None]
  - DRUG LEVEL DECREASED [None]
